FAERS Safety Report 4963800-5 (Version None)
Quarter: 2006Q1

REPORT INFORMATION
  Report Type: 
  Country: None (occurrence: None)
  Receive Date: 20060330
  Receipt Date: 20060317
  Transmission Date: 20060701
  Serious: Yes (Hospitalization, Other)
  Sender: FDA-Public Use
  Company Number: ST-2006-008879

PATIENT
  Age: 80 Year
  Sex: Female
  Weight: 52 kg

DRUGS (7)
  1. OLMETEC [Suspect]
     Indication: HYPERTENSION
     Dosage: 20 MG QD PO
     Route: 048
     Dates: start: 20050805
  2. OMEPRAL [Suspect]
     Indication: REFLUX OESOPHAGITIS
     Dosage: 20 MG BID PO
     Route: 048
     Dates: start: 20050805
  3. LANDEL [Suspect]
     Indication: HYPERTENSION
     Dosage: 10 MG QD PO
     Route: 048
     Dates: start: 20050805
  4. PRIMPERAN TAB [Suspect]
     Indication: GASTRITIS
     Dosage: 15 MG TID PO
     Route: 048
     Dates: start: 20050913
  5. TAMIFUL [Suspect]
     Indication: INFLUENZA
     Dosage: 150 MG BID PO
     Route: 048
     Dates: start: 20060217, end: 20060221
  6. ALDACTONE [Concomitant]
  7. HALCION [Concomitant]

REACTIONS (4)
  - DEHYDRATION [None]
  - INFLUENZA [None]
  - RENAL FAILURE [None]
  - RHABDOMYOLYSIS [None]
